FAERS Safety Report 6459710 (Version 7)
Quarter: 2013Q3

REPORT INFORMATION
  Report Type: Spontaneous
  Country: US (occurrence: US)
  Receive Date: 20070924
  Receipt Date: 20130916
  Transmission Date: 20140515
  Serious: Yes (Hospitalization, Other)
  Sender: FDA-Public Use
  Company Number: PHEH2007US07935

PATIENT
  Sex: Female

DRUGS (23)
  1. FEMARA [Suspect]
     Indication: BREAST CANCER
     Dosage: 2.5 MG, QD
     Route: 048
     Dates: start: 200611
  2. RECLAST [Suspect]
     Indication: OSTEOPENIA
     Dosage: UNK UKN, UNK
     Dates: start: 200806
  3. LABETALOL [Concomitant]
     Indication: HYPERTENSION
     Dosage: UNK UKN, UNK
  4. HYZAAR [Concomitant]
     Indication: HYPERTENSION
     Dosage: UNK UKN, UNK
  5. K-DUR [Concomitant]
     Dosage: UNK UKN, UNK
  6. ALLEGRA [Concomitant]
     Dosage: UNK UKN, UNK
  7. CELEBREX [Concomitant]
     Dosage: UNK UKN, UNK
  8. ZOCOR [Concomitant]
     Indication: BLOOD CHOLESTEROL INCREASED
     Dosage: UNK UKN, UNK
  9. DILAUDID [Concomitant]
     Indication: PAIN
     Dosage: UNK UKN, UNK
  10. ZANAFLEX [Concomitant]
     Dosage: UNK UKN, UNK
  11. VITAMIN D3 [Concomitant]
     Dosage: UNK UKN, UNK
  12. CALTRATE +D [Concomitant]
     Dosage: UNK UKN, UNK
  13. CENTRUM SILVER [Concomitant]
     Dosage: UNK UKN, UNK
  14. NEXIUM [Concomitant]
     Dosage: UNK UKN, UNK
  15. EXALGO [Concomitant]
     Indication: PAIN
     Dosage: UNK UKN, UNK
  16. LIDODERM [Concomitant]
     Indication: PAIN
     Dosage: UNK UKN, UNK
  17. VITAMIN B12 [Concomitant]
     Dosage: UNK UKN, UNK
  18. TYLENOL [Concomitant]
     Dosage: 500 MG, TID
  19. ALREX [Concomitant]
     Dosage: UNK UKN, UNK
  20. ESTRING [Concomitant]
     Dosage: UNK UKN, UNK
  21. ASA [Concomitant]
     Dosage: UNK UKN, UNK
  22. GENTEAL                            /03186201/ [Concomitant]
     Dosage: UNK UKN, UNK
  23. COLACE [Concomitant]
     Dosage: UNK UKN, UNK

REACTIONS (19)
  - Pyrexia [Unknown]
  - Bone marrow oedema [Unknown]
  - Pelvic fracture [Unknown]
  - Stress fracture [Unknown]
  - Rib fracture [Unknown]
  - Ankle fracture [Unknown]
  - Cervical vertebral fracture [Unknown]
  - Fracture [Unknown]
  - Osteoporosis [Unknown]
  - Bone loss [Unknown]
  - Bone density abnormal [Unknown]
  - Fibromyalgia [Unknown]
  - Fatigue [Unknown]
  - Incorrect product storage [Unknown]
  - Bone pain [Not Recovered/Not Resolved]
  - Weight decreased [Unknown]
  - Oedema [Unknown]
  - Vulvovaginal dryness [Unknown]
  - Blood cholesterol increased [Unknown]
